FAERS Safety Report 25795486 (Version 1)
Quarter: 2025Q3

REPORT INFORMATION
  Report Type: Spontaneous
  Country: US (occurrence: None)
  Receive Date: 20250911
  Receipt Date: 20250911
  Transmission Date: 20251021
  Serious: No
  Sender: FDA-CTU
  Company Number: None

PATIENT
  Age: 70 Year
  Sex: Male

DRUGS (1)
  1. DUPIXENT [Suspect]
     Active Substance: DUPILUMAB
     Indication: Dermatitis atopic
     Dosage: FREQUENCY : EVERY OTHER WEEK;?STRENGTH: 300
     Route: 058
     Dates: start: 20250616

REACTIONS (5)
  - Myalgia [None]
  - Arthralgia [None]
  - Arthritis [None]
  - Myositis [None]
  - Therapy cessation [None]
